FAERS Safety Report 10473886 (Version 1)
Quarter: 2014Q3

REPORT INFORMATION
  Report Type: Report from Study
  Country: DE (occurrence: DE)
  Receive Date: 20140924
  Receipt Date: 20140924
  Transmission Date: 20150326
  Serious: Yes (Death, Hospitalization)
  Sender: FDA-Public Use
  Company Number: PHHY2014DE118894

PATIENT
  Sex: Male
  Weight: 61 kg

DRUGS (12)
  1. SALBUHEXAL [Suspect]
     Active Substance: ALBUTEROL
     Indication: CHRONIC OBSTRUCTIVE PULMONARY DISEASE
     Dosage: 1 DF, PRN
     Dates: start: 201111
  2. MARCUMAR [Concomitant]
     Active Substance: PHENPROCOUMON
  3. FERRLECIT                               /GFR/ [Concomitant]
  4. ULTIBRO BREEZHALER [Suspect]
     Active Substance: GLYCOPYRRONIUM\INDACATEROL
     Indication: CHRONIC OBSTRUCTIVE PULMONARY DISEASE
     Dosage: 1 DF, QD
     Route: 055
     Dates: start: 20140402
  5. BISOPROLOL AL [Concomitant]
     Indication: HYPERTENSION
  6. DIGIMERCK [Concomitant]
     Active Substance: DIGITOXIN
  7. DREISAVIT [Concomitant]
  8. DEKRISTOL [Concomitant]
     Active Substance: CHOLECALCIFEROL
     Dosage: 2000 I.E
  9. MACROGOL [Concomitant]
     Active Substance: POLYETHYLENE GLYCOLS
  10. NO TREATMENT RECEIVED [Suspect]
     Active Substance: UNSPECIFIED INGREDIENT
  11. RAMIPRIL AL [Concomitant]
  12. EPOETIN ALFA [Concomitant]
     Active Substance: ERYTHROPOIETIN
     Dosage: 2000 I.E/ML

REACTIONS (1)
  - Cerebrovascular accident [Fatal]

NARRATIVE: CASE EVENT DATE: 20140726
